FAERS Safety Report 15334115 (Version 1)
Quarter: 2018Q3

REPORT INFORMATION
  Report Type: Spontaneous
  Country: US (occurrence: US)
  Receive Date: 20180827
  Receipt Date: 20180827
  Transmission Date: 20181010
  Serious: No
  Sender: FDA-Public Use
  Company Number: None

PATIENT
  Age: 41 Year
  Sex: Female
  Weight: 52.2 kg

DRUGS (7)
  1. SPIRULINE [Concomitant]
  2. NITROFURANTOIN MONO 100MG CAP AN [Suspect]
     Active Substance: NITROFURANTOIN\NITROFURANTOIN MONOHYDRATE
     Indication: CYSTITIS
     Dosage: ?          QUANTITY:14 CAPSULE(S);?
     Route: 048
     Dates: start: 20180731, end: 20180803
  3. VITAMIN B COMPLEX [Concomitant]
     Active Substance: CYANOCOBALAMIN\DEXPANTHENOL\NIACINAMIDE\PYRIDOXINE HYDROCHLORIDE\RIBOFLAVIN 5^-PHOSPHATE SODIUM\THIAMINE HYDROCHLORIDE\VITAMIN B COMPLEX
  4. VITAMIN D3 [Concomitant]
     Active Substance: CHOLECALCIFEROL
  5. VITAMIN SUPPLEMENTS [Concomitant]
     Active Substance: VITAMINS
  6. NITROFURANTOIN MONO 100MG CAP AN [Suspect]
     Active Substance: NITROFURANTOIN\NITROFURANTOIN MONOHYDRATE
     Indication: URINARY TRACT INFECTION
     Dosage: ?          QUANTITY:14 CAPSULE(S);?
     Route: 048
     Dates: start: 20180731, end: 20180803
  7. CHLORELLA [Concomitant]

REACTIONS (6)
  - Therapy cessation [None]
  - Neuropathy peripheral [None]
  - Affective disorder [None]
  - Feeling abnormal [None]
  - Loss of personal independence in daily activities [None]
  - Depression [None]

NARRATIVE: CASE EVENT DATE: 20180731
